FAERS Safety Report 5262252-8 (Version None)
Quarter: 2007Q1

REPORT INFORMATION
  Report Type: 
  Country: None (occurrence: None)
  Receive Date: 20070308
  Receipt Date: 20070223
  Transmission Date: 20070707
  Serious: Yes (Life-Threatening)
  Sender: FDA-Public Use
  Company Number: 2007RR-05992

PATIENT
  Age: 44 Year
  Sex: Female

DRUGS (6)
  1. ENALAPRIL MALEATE (ENALAPRIL) UNKNOWN [Suspect]
     Indication: HYPERTENSION
     Dosage: 20 MG, QD, ORAL
     Route: 048
  2. KEAL [Concomitant]
  3. RENAGEL [Concomitant]
  4. VASTAREL [Concomitant]
  5. NEORECORMION [Concomitant]
  6. KAYESCALATE [Concomitant]

REACTIONS (4)
  - ANAEMIA [None]
  - DRUG DOSE OMISSION [None]
  - DUODENAL ULCER [None]
  - DUODENAL ULCER HAEMORRHAGE [None]
